FAERS Safety Report 25211950 (Version 1)
Quarter: 2025Q2

REPORT INFORMATION
  Report Type: Report from Study
  Country: TR (occurrence: TR)
  Receive Date: 20250418
  Receipt Date: 20250418
  Transmission Date: 20250717
  Serious: Yes (Hospitalization, Other)
  Sender: ALEXION PHARMACEUTICALS
  Company Number: TR-AstraZeneca-CH-00847459A

PATIENT
  Age: 79 Year
  Weight: 70 kg

DRUGS (4)
  1. DURVALUMAB [Suspect]
     Active Substance: DURVALUMAB
     Indication: Hepatocellular carcinoma
     Dosage: 1500 MILLIGRAM, BID
  2. TREMELIMUMAB [Suspect]
     Active Substance: TREMELIMUMAB
     Indication: Hepatocellular carcinoma
     Dosage: 300 MILLIGRAM, BID
  3. PREDNISOLONE [Concomitant]
     Active Substance: PREDNISOLONE
     Dosage: 80 MILLIGRAM, BID
  4. SALINE [Concomitant]
     Active Substance: SODIUM CHLORIDE
     Dosage: 2000 CC, BID

REACTIONS (2)
  - Colitis [Recovered/Resolved]
  - Liver scan abnormal [Unknown]
